FAERS Safety Report 11815593 (Version 3)
Quarter: 2016Q4

REPORT INFORMATION
  Report Type: Spontaneous
  Country: DE (occurrence: JP)
  Receive Date: 20151209
  Receipt Date: 20161202
  Transmission Date: 20170206
  Serious: Yes (Hospitalization, Other)
  Sender: FDA-Public Use
  Company Number: JP-FRI-1000081322

PATIENT
  Age: 64 Year
  Sex: Female

DRUGS (3)
  1. TIAPRIDE [Suspect]
     Active Substance: TIAPRIDE
     Indication: DEMENTIA ALZHEIMER^S TYPE
  2. MEMANTINE HCL UNK [Suspect]
     Active Substance: MEMANTINE HYDROCHLORIDE
     Indication: DEMENTIA ALZHEIMER^S TYPE
     Dosage: UNK
     Dates: start: 2013
  3. DONEPEZIL HYDROCHLORIDE. [Suspect]
     Active Substance: DONEPEZIL HYDROCHLORIDE
     Indication: DEMENTIA ALZHEIMER^S TYPE

REACTIONS (9)
  - Psychomotor hyperactivity [Unknown]
  - Seizure [Unknown]
  - Dystonia [Unknown]
  - Dementia with Lewy bodies [Unknown]
  - Screaming [Unknown]
  - Delusional disorder, persecutory type [Unknown]
  - Akathisia [Not Recovered/Not Resolved]
  - Aggression [Unknown]
  - Memory impairment [Unknown]
